FAERS Safety Report 25058809 (Version 2)
Quarter: 2025Q1

REPORT INFORMATION
  Report Type: Spontaneous
  Country: JP (occurrence: JP)
  Receive Date: 20250310
  Receipt Date: 20250318
  Transmission Date: 20250408
  Serious: Yes (Death, Life-Threatening, Hospitalization)
  Sender: MERCK SHARP & DOHME LLC
  Company Number: JP-009507513-2262185

PATIENT
  Age: 42 Year
  Sex: Female

DRUGS (2)
  1. KEYTRUDA [Suspect]
     Active Substance: PEMBROLIZUMAB
     Indication: Triple negative breast cancer
     Dosage: 200MG ONCE EVERY 3 WEEKS
     Route: 041
     Dates: start: 20241201, end: 20250205
  2. CAPECITABINE [Suspect]
     Active Substance: CAPECITABINE

REACTIONS (2)
  - Death [Fatal]
  - Acute hepatic failure [Unknown]

NARRATIVE: CASE EVENT DATE: 20250204
